FAERS Safety Report 7203787-8 (Version None)
Quarter: 2010Q4

REPORT INFORMATION
  Report Type: 
  Country: None (occurrence: None)
  Receive Date: 20101230
  Receipt Date: 20101227
  Transmission Date: 20110411
  Serious: Yes (Death, Life-Threatening, Hospitalization)
  Sender: FDA-Public Use
  Company Number: PHHO2010ES18927

PATIENT
  Sex: Male
  Weight: 80 kg

DRUGS (11)
  1. ALISKIREN [Suspect]
     Indication: CARDIAC FAILURE ACUTE
     Dosage: DOUBLE BLIND
     Route: 048
     Dates: start: 20101130, end: 20101208
  2. ENALAPRIL [Suspect]
     Indication: CARDIAC FAILURE
     Dosage: 10 MG, BID
     Route: 048
     Dates: start: 20010101, end: 20101213
  3. FUROSEMIDE [Concomitant]
     Indication: CARDIAC FAILURE
  4. COROPRES [Concomitant]
     Indication: CARDIAC FAILURE
  5. ASPIRIN [Concomitant]
  6. CLOPIDOGREL [Concomitant]
     Indication: MYOCARDIAL INFARCTION
  7. NORVASC [Concomitant]
  8. EPLERENONE [Concomitant]
     Indication: CARDIAC FAILURE
  9. HYDROCHLOROTHIAZIDE [Concomitant]
     Indication: CARDIAC FAILURE
  10. LYRICA [Concomitant]
     Indication: DIABETIC NEUROPATHY
  11. CHLORTHALIDONE [Concomitant]

REACTIONS (15)
  - ABNORMAL BEHAVIOUR [None]
  - ACUTE PULMONARY OEDEMA [None]
  - CARDIOGENIC SHOCK [None]
  - DEPRESSED LEVEL OF CONSCIOUSNESS [None]
  - DYSPNOEA [None]
  - GASTROINTESTINAL HAEMORRHAGE [None]
  - HALLUCINATION [None]
  - HYPERKALAEMIA [None]
  - METABOLIC ACIDOSIS [None]
  - PYREXIA [None]
  - RENAL FAILURE ACUTE [None]
  - RESPIRATORY FAILURE [None]
  - SEPSIS [None]
  - UPPER RESPIRATORY TRACT INFECTION [None]
  - URAEMIC ENCEPHALOPATHY [None]
